FAERS Safety Report 11171681 (Version 2)
Quarter: 2015Q2

REPORT INFORMATION
  Report Type: Report from Study
  Country: US (occurrence: US)
  Receive Date: 20150608
  Receipt Date: 20150616
  Transmission Date: 20150821
  Serious: Yes (Hospitalization)
  Sender: FDA-Public Use
  Company Number: PHEH2015US010570

PATIENT
  Age: 47 Year
  Sex: Female
  Weight: 63.4 kg

DRUGS (1)
  1. MYFORTIC [Suspect]
     Active Substance: MYCOPHENOLATE SODIUM
     Indication: PRODUCT USED FOR UNKNOWN INDICATION
     Dosage: 180 MG/KG, UNK
     Route: 048

REACTIONS (4)
  - Abasia [Unknown]
  - Abdominal discomfort [Not Recovered/Not Resolved]
  - Dysstasia [Unknown]
  - Weight decreased [Not Recovered/Not Resolved]
